FAERS Safety Report 22634457 (Version 1)
Quarter: 2023Q2

REPORT INFORMATION
  Report Type: Spontaneous
  Country: US (occurrence: US)
  Receive Date: 20230623
  Receipt Date: 20230623
  Transmission Date: 20230722
  Serious: Yes (Hospitalization)
  Sender: FDA-Public Use
  Company Number: US-BRISTOL-MYERS SQUIBB COMPANY-2023-088178

PATIENT
  Age: 69 Year
  Sex: Female
  Weight: 54.43 kg

DRUGS (1)
  1. ELIQUIS [Suspect]
     Active Substance: APIXABAN
     Indication: Cerebrovascular accident prophylaxis
     Route: 048
     Dates: start: 20230531

REACTIONS (4)
  - Nausea [Unknown]
  - Dyspepsia [Unknown]
  - Eructation [Unknown]
  - Weight decreased [Unknown]

NARRATIVE: CASE EVENT DATE: 20230531
